FAERS Safety Report 4497238-4 (Version None)
Quarter: 2004Q3

REPORT INFORMATION
  Report Type: 
  Country: None (occurrence: None)
  Receive Date: 20040927
  Receipt Date: 20040625
  Transmission Date: 20050211
  Serious: No
  Sender: FDA-Public Use
  Company Number: USA040671106

PATIENT
  Sex: Female

DRUGS (2)
  1. STRATTERA [Suspect]
     Dosage: 25 MG/1 IN THE MORNING
     Dates: start: 20040624
  2. WELLBUTRIN [Concomitant]

REACTIONS (4)
  - APATHY [None]
  - DECREASED APPETITE [None]
  - DRY MOUTH [None]
  - FATIGUE [None]
